FAERS Safety Report 10036203 (Version 1)
Quarter: 2014Q1

REPORT INFORMATION
  Report Type: Spontaneous
  Country: IT (occurrence: IT)
  Receive Date: 20140325
  Receipt Date: 20140325
  Transmission Date: 20141002
  Serious: Yes (Hospitalization)
  Sender: FDA-Public Use
  Company Number: IT-PFIZER INC-2014084064

PATIENT
  Age: 60 Year
  Sex: Male

DRUGS (8)
  1. TRIATEC [Suspect]
     Indication: CARDIAC DISORDER
     Dosage: 5 MG, DAILY
     Route: 048
     Dates: start: 200804
  2. TORVAST [Suspect]
     Indication: CARDIAC DISORDER
     Dosage: 1 DF, DAILY
     Route: 048
     Dates: start: 200804
  3. LASIX [Suspect]
     Indication: POLYURIA
     Dosage: 1 DF, 2X/DAY
     Route: 048
     Dates: start: 200804
  4. CARDIOASPIRIN [Suspect]
     Indication: CARDIAC DISORDER
     Dosage: 1 DF, DAILY
     Route: 048
     Dates: start: 200804
  5. BENTELAN [Suspect]
     Indication: PREMEDICATION
     Dosage: 1 DF, UNK
     Route: 048
     Dates: start: 200804
  6. ZIRTEC [Suspect]
     Indication: PREMEDICATION
     Dosage: 1 DF, UNK
     Route: 048
     Dates: start: 201401
  7. ISOPTIN [Suspect]
     Indication: HYPERTENSION
     Dosage: 1 DF, 3X/DAY
     Route: 048
     Dates: start: 200804
  8. PRADAXA [Suspect]
     Dosage: UNK
     Route: 065
     Dates: start: 201401

REACTIONS (2)
  - Chest pain [Recovering/Resolving]
  - Dyspnoea [Recovering/Resolving]
